FAERS Safety Report 7158625-9 (Version None)
Quarter: 2010Q4

REPORT INFORMATION
  Report Type: 
  Country: None (occurrence: None)
  Receive Date: 20101214
  Receipt Date: 20100616
  Transmission Date: 20110411
  Serious: No
  Sender: FDA-Public Use
  Company Number: US-ASTRAZENECA-2010SE28122

PATIENT
  Age: 66 Year
  Sex: Female
  Weight: 49.9 kg

DRUGS (6)
  1. CRESTOR [Suspect]
     Indication: BLOOD CHOLESTEROL
     Route: 048
     Dates: start: 20060616
  2. CLARITIN [Concomitant]
     Indication: MULTIPLE ALLERGIES
  3. LEXAPRO [Concomitant]
     Indication: DEPRESSION
  4. PRILOSEC [Concomitant]
     Indication: GASTROOESOPHAGEAL REFLUX DISEASE
  5. SYMBICORT [Concomitant]
     Indication: DYSPNOEA
  6. TRAVATAN [Concomitant]
     Indication: GLAUCOMA

REACTIONS (3)
  - ASTHENIA [None]
  - DYSPNOEA [None]
  - WEIGHT DECREASED [None]
